FAERS Safety Report 4833083-5 (Version None)
Quarter: 2005Q4

REPORT INFORMATION
  Report Type: 
  Country: None (occurrence: None)
  Receive Date: 20051117
  Receipt Date: 20051104
  Transmission Date: 20060501
  Serious: Yes (Other)
  Sender: FDA-Public Use
  Company Number: 2005154673

PATIENT
  Sex: Female

DRUGS (1)
  1. CELEBREX [Suspect]
     Indication: ILL-DEFINED DISORDER

REACTIONS (11)
  - ANKLE FRACTURE [None]
  - ANXIETY [None]
  - ARTHROPATHY [None]
  - BLOOD CHOLESTEROL INCREASED [None]
  - DIFFICULTY IN WALKING [None]
  - HYPERTENSION [None]
  - INSOMNIA [None]
  - MOBILITY DECREASED [None]
  - POLLAKIURIA [None]
  - UTERINE CANCER [None]
  - UTERINE NEOPLASM [None]
